FAERS Safety Report 7232543-X (Version None)
Quarter: 2011Q1

REPORT INFORMATION
  Report Type: 
  Country: None (occurrence: None)
  Receive Date: 20110119
  Receipt Date: 20110113
  Transmission Date: 20110831
  Serious: Yes (Hospitalization, Other)
  Sender: FDA-Public Use
  Company Number: JP-BAYER-2011-004647

PATIENT
  Age: 79 Year
  Sex: Female
  Weight: 39 kg

DRUGS (5)
  1. NEXAVAR [Suspect]
     Indication: RENAL CELL CARCINOMA
     Dosage: 800 MG, QD
     Route: 048
     Dates: start: 20100811
  2. MYSLEE [Concomitant]
     Dosage: DAILY DOSE 10 MG
     Route: 048
     Dates: start: 20081017
  3. NEXAVAR [Suspect]
     Dosage: 400 MG, QD
     Dates: start: 20100901, end: 20100915
  4. ATELEC [Concomitant]
     Dosage: DAILY DOSE 20 MG
     Route: 048
     Dates: start: 20080828
  5. UNCODEABLE ^UNCLASSIFIABLE^ [Concomitant]

REACTIONS (3)
  - PALPITATIONS [None]
  - PALMAR-PLANTAR ERYTHRODYSAESTHESIA SYNDROME [None]
  - SUPRAVENTRICULAR TACHYCARDIA [None]
